FAERS Safety Report 9165921 (Version 1)
Quarter: 2013Q1

REPORT INFORMATION
  Report Type: Spontaneous
  Country: US (occurrence: None)
  Receive Date: 20130314
  Receipt Date: 20130314
  Transmission Date: 20140127
  Serious: Yes (Hospitalization)
  Sender: FDA-Public Use
  Company Number: None

PATIENT
  Age: 19 Year
  Sex: Female
  Weight: 79.83 kg

DRUGS (1)
  1. APRI [Suspect]
     Dosage: ONE  DAILY BY MOUTH
     Route: 048
     Dates: start: 20120109, end: 20130126

REACTIONS (1)
  - Pulmonary embolism [None]
